FAERS Safety Report 4263834-2 (Version None)
Quarter: 2004Q1

REPORT INFORMATION
  Report Type: 
  Country: None (occurrence: None)
  Receive Date: 20040102
  Receipt Date: 20031215
  Transmission Date: 20041129
  Serious: Yes (Death, Other)
  Sender: FDA-Public Use
  Company Number: EWC031237409

PATIENT
  Age: 59 Year
  Sex: Male

DRUGS (2)
  1. ZYPREXA [Suspect]
     Route: 048
     Dates: start: 20031212
  2. ATIVAN [Concomitant]

REACTIONS (3)
  - ABDOMINAL DISTENSION [None]
  - CARCINOMA [None]
  - REFUSAL OF TREATMENT BY PATIENT [None]
